FAERS Safety Report 9915906 (Version 1)
Quarter: 2014Q1

REPORT INFORMATION
  Report Type: Spontaneous
  Country: US (occurrence: None)
  Receive Date: 20140219
  Receipt Date: 20140219
  Transmission Date: 20141002
  Serious: Yes (Life-Threatening, Hospitalization, Disabling)
  Sender: FDA-Public Use
  Company Number: None

PATIENT
  Age: 37 Year
  Sex: Female
  Weight: 100.7 kg

DRUGS (2)
  1. AMETHYST [Suspect]
     Indication: CONTRACEPTION
     Route: 048
     Dates: start: 20120301, end: 20131101
  2. AMETHYST [Suspect]
     Indication: ENDOMETRIOSIS
     Route: 048
     Dates: start: 20120301, end: 20131101

REACTIONS (2)
  - Pulmonary embolism [None]
  - Deep vein thrombosis [None]
